FAERS Safety Report 5255943-6 (Version None)
Quarter: 2007Q1

REPORT INFORMATION
  Report Type: 
  Country: None (occurrence: None)
  Receive Date: 20061204
  Receipt Date: 20061027
  Transmission Date: 20070707
  Serious: No
  Sender: FDA-Public Use
  Company Number: 2006-BP-10959BP

PATIENT
  Age: 74 Year
  Sex: Male

DRUGS (5)
  1. SPIRIVA [Suspect]
     Indication: CHRONIC OBSTRUCTIVE PULMONARY DISEASE
     Dosage: 18 MCG (18 MCG, 1 IN 1 D), IH
     Route: 055
     Dates: start: 20060601, end: 20061013
  2. SPIRIVA [Suspect]
  3. THEOPHYLLINE [Suspect]
     Indication: CHRONIC OBSTRUCTIVE PULMONARY DISEASE
     Dosage: 600 MG (300 MG, 2 IN 1 D), NR
  4. LORAZEPAM [Concomitant]
  5. PREDNISONE TAB [Concomitant]

REACTIONS (7)
  - DRY MOUTH [None]
  - DYSPNOEA [None]
  - GLAUCOMA [None]
  - INSOMNIA [None]
  - MUCOUS MEMBRANE DISORDER [None]
  - RESTLESSNESS [None]
  - TENSION [None]
